FAERS Safety Report 21227077 (Version 3)
Quarter: 2022Q4

REPORT INFORMATION
  Report Type: Report from Study
  Country: CA (occurrence: CA)
  Receive Date: 20220818
  Receipt Date: 20221216
  Transmission Date: 20230113
  Serious: Yes (Hospitalization, Other)
  Sender: FDA-Public Use
  Company Number: CA-TAKEDA-2022TUS056583

PATIENT
  Age: 81 Year
  Sex: Female

DRUGS (9)
  1. VEDOLIZUMAB [Suspect]
     Active Substance: VEDOLIZUMAB
     Indication: Colitis ulcerative
     Dosage: 300 MILLIGRAM
     Route: 042
  2. MESALAMINE [Concomitant]
     Active Substance: MESALAMINE
     Dosage: 4.8 GRAM, QD
     Dates: start: 2017
  3. Salofalk [Concomitant]
     Dosage: UNK
     Dates: start: 2022
  4. Cortiment [Concomitant]
     Dosage: 9 MILLIGRAM, QD
  5. WARFARIN [Concomitant]
     Active Substance: WARFARIN
     Dosage: 1 MILLIGRAM, BID
  6. AMLODIPINE [Concomitant]
     Active Substance: AMLODIPINE BESYLATE
     Dosage: 5 MILLIGRAM
  7. ATENOLOL [Concomitant]
     Active Substance: ATENOLOL
     Dosage: 12.5 MILLIGRAM
  8. DIGOXIN [Concomitant]
     Active Substance: DIGOXIN
     Dosage: UNK
  9. COUMADIN [Concomitant]
     Active Substance: WARFARIN SODIUM
     Dosage: UNK

REACTIONS (11)
  - Rectal haemorrhage [Unknown]
  - Asthenia [Unknown]
  - Tremor [Unknown]
  - Dehydration [Unknown]
  - Blood pressure decreased [Unknown]
  - Confusional state [Unknown]
  - Vomiting [Unknown]
  - Nausea [Unknown]
  - Pyrexia [Unknown]
  - General physical health deterioration [Unknown]
  - Decreased appetite [Unknown]
